FAERS Safety Report 4493953-7 (Version None)
Quarter: 2004Q4

REPORT INFORMATION
  Report Type: 
  Country: None (occurrence: None)
  Receive Date: 20041105
  Receipt Date: 20041020
  Transmission Date: 20050328
  Serious: Yes (Hospitalization)
  Sender: FDA-Public Use
  Company Number: PHEH2004US11272

PATIENT
  Age: 56 Year
  Sex: Female
  Weight: 58 kg

DRUGS (7)
  1. ZELNORM [Suspect]
     Indication: IRRITABLE BOWEL SYNDROME
     Dosage: 6 MG, BID
     Route: 048
     Dates: start: 20040806, end: 20041005
  2. LIPITOR [Concomitant]
     Dosage: 20 MG, QD
  3. HYDROCHLOROTHIAZIDE [Concomitant]
     Dosage: 50 MG, QD
     Route: 048
  4. TIGAN [Concomitant]
  5. ACETYLSALICYLATE [Concomitant]
  6. LOTREL [Concomitant]
     Indication: HYPERTENSION
     Dosage: 5/10 MG, QD
     Route: 048
  7. HYOSCYAMINE [Concomitant]
     Indication: ABDOMINAL PAIN
     Dosage: UNK, PRN

REACTIONS (16)
  - ABDOMINAL PAIN [None]
  - ABDOMINAL TENDERNESS [None]
  - ABDOMINAL X-RAY [None]
  - BARIUM ENEMA ABNORMAL [None]
  - BIOPSY COLON ABNORMAL [None]
  - COLITIS ISCHAEMIC [None]
  - COLONOSCOPY ABNORMAL [None]
  - COMPUTERISED TOMOGRAM ABDOMEN ABNORMAL [None]
  - DIARRHOEA HAEMORRHAGIC [None]
  - DIVERTICULUM [None]
  - HAEMORRHOIDS [None]
  - HYPERHIDROSIS [None]
  - LARGE INTESTINAL ULCER [None]
  - NAUSEA [None]
  - VOMITING [None]
  - WHITE BLOOD CELL COUNT INCREASED [None]
